FAERS Safety Report 20492038 (Version 10)
Quarter: 2022Q3

REPORT INFORMATION
  Report Type: Report from Study
  Country: CN (occurrence: CN)
  Receive Date: 20220218
  Receipt Date: 20220920
  Transmission Date: 20221026
  Serious: Yes (Hospitalization)
  Sender: FDA-Public Use
  Company Number: CN-PFIZER INC-202200259809

PATIENT
  Age: 53 Year
  Sex: Female
  Weight: 55.75 kg

DRUGS (19)
  1. PACLITAXEL [Suspect]
     Active Substance: PACLITAXEL
     Indication: Ovarian cancer
     Dosage: 126 MG, WEEKLY
     Route: 042
     Dates: start: 20220113, end: 20220127
  2. AFURESERTIB [Suspect]
     Active Substance: AFURESERTIB
     Indication: Ovarian cancer
     Dosage: 125 MG, 1X/DAY, TABLET
     Route: 048
     Dates: start: 20220113, end: 20220201
  3. SPIRONOLACTONE [Concomitant]
     Active Substance: SPIRONOLACTONE
     Indication: Hypertension
     Dosage: 20 MG, 2X/DAY
     Route: 048
     Dates: start: 20220113, end: 20220202
  4. NIFEDIPINE [Concomitant]
     Active Substance: NIFEDIPINE
     Indication: Hypertension
     Dosage: 20 MG, 1X/DAY, SUSTAINED-RELEASE TABLETS
     Route: 048
     Dates: start: 20220115, end: 20220202
  5. FUROSEMIDE [Concomitant]
     Active Substance: FUROSEMIDE
     Indication: Hypertension
     Dosage: 20 MG, 1X/DAY
     Route: 048
     Dates: start: 20220113, end: 20220118
  6. FUROSEMIDE [Concomitant]
     Active Substance: FUROSEMIDE
     Dosage: 20 MG, 2X/DAY
     Route: 048
     Dates: start: 20220119, end: 20220202
  7. LANSOPRAZOLE [Concomitant]
     Active Substance: LANSOPRAZOLE
     Indication: Prophylaxis
     Dosage: 30 MG, ONCE
     Route: 041
     Dates: start: 20220120, end: 20220120
  8. LANSOPRAZOLE [Concomitant]
     Active Substance: LANSOPRAZOLE
     Dosage: 20 MG, ONCE
     Route: 041
     Dates: start: 20220127, end: 20220127
  9. ONDANSETRON HYDROCHLORIDE [Concomitant]
     Active Substance: ONDANSETRON HYDROCHLORIDE
     Indication: Prophylaxis
     Dosage: 8 MG, ONCE
     Route: 041
     Dates: start: 20220120, end: 20220120
  10. ONDANSETRON HYDROCHLORIDE [Concomitant]
     Active Substance: ONDANSETRON HYDROCHLORIDE
     Dosage: 8 MG, ONCE
     Route: 041
     Dates: start: 20220127, end: 20220127
  11. DEXAMETHASONE [Concomitant]
     Active Substance: DEXAMETHASONE
     Indication: Prophylaxis
     Dosage: 10 ML, ONCE
     Route: 041
     Dates: start: 20220120, end: 20220120
  12. DEXAMETHASONE [Concomitant]
     Active Substance: DEXAMETHASONE
     Dosage: 10 ML, ONCE
     Route: 041
     Dates: start: 20220127, end: 20220127
  13. PARAFFIN OIL [Concomitant]
     Indication: Constipation prophylaxis
     Dosage: 20 ML, AS NEEDED
     Route: 048
     Dates: start: 20220121, end: 20220202
  14. LACTULOSE [Concomitant]
     Active Substance: LACTULOSE
     Indication: Constipation prophylaxis
     Dosage: 7 ML, AS NEEDED, LIQUID
     Route: 048
     Dates: start: 20220121, end: 20220202
  15. KANG FU XIN [Concomitant]
     Indication: Mouth ulceration
     Dosage: SOLUTION 20 ML, ONCE, LIQUID
     Route: 048
     Dates: start: 20220121, end: 20220121
  16. TESTA TRITICUM TRICUM PURIF [Concomitant]
     Indication: Constipation prophylaxis
     Dosage: 3.5 G, 1X/DAY
     Route: 048
     Dates: start: 20220123, end: 20220124
  17. DEXAMETHASONE ACETATE [Concomitant]
     Active Substance: DEXAMETHASONE ACETATE
     Indication: Prophylaxis
     Dosage: 18.75 MG, ONCE
     Route: 048
     Dates: start: 20220119, end: 20220119
  18. DEXAMETHASONE ACETATE [Concomitant]
     Active Substance: DEXAMETHASONE ACETATE
     Dosage: 18.75 MG, ONCE
     Route: 048
     Dates: start: 20220126, end: 20220126
  19. LIDOCAINE HYDROCHLORIDE [Concomitant]
     Active Substance: LIDOCAINE HYDROCHLORIDE
     Indication: Anaesthesia
     Dosage: 0.2 G, ONCE,  FOR ANESTHESIA FOR INFUSION PORT
     Route: 058
     Dates: start: 20220127, end: 20220127

REACTIONS (1)
  - Gastrointestinal perforation [Not Recovered/Not Resolved]

NARRATIVE: CASE EVENT DATE: 20220203
